FAERS Safety Report 9287330 (Version 2)
Quarter: 2014Q2

REPORT INFORMATION
  Report Type: Report from Study
  Country: US (occurrence: US)
  Receive Date: 20130514
  Receipt Date: 20140519
  Transmission Date: 20141212
  Serious: Yes (Hospitalization, Other)
  Sender: FDA-Public Use
  Company Number: US-ROCHE-1175270

PATIENT
  Age: 61 Year
  Sex: Female
  Weight: 61.7 kg

DRUGS (2)
  1. CAPECITABINE [Suspect]
     Indication: BREAST CANCER METASTATIC
     Dosage: ON DAY 1 TO DAY 14 OF 21 DAY CYCLE
     Route: 048
     Dates: start: 20111118, end: 20121109
  2. RAMUCIRUMAB [Suspect]
     Indication: BREAST CANCER METASTATIC
     Dosage: ON DAY 1
     Route: 042
     Dates: start: 20111118, end: 20121026

REACTIONS (3)
  - Hypertension [Recovered/Resolved]
  - Nervous system disorder [Unknown]
  - Headache [Recovered/Resolved]
